FAERS Safety Report 5252956-5 (Version None)
Quarter: 2007Q1

REPORT INFORMATION
  Report Type: 
  Country: None (occurrence: None)
  Receive Date: 20070222
  Receipt Date: 20070212
  Transmission Date: 20070707
  Serious: Yes (Other)
  Sender: FDA-Public Use
  Company Number: THYM-11015

PATIENT
  Age: 32 Year
  Sex: Male
  Weight: 70 kg

DRUGS (16)
  1. THYMOGLOBULIN [Suspect]
     Indication: KIDNEY TRANSPLANT REJECTION
     Dosage: 100 MG QD IV
     Route: 042
     Dates: start: 20050717, end: 20050717
  2. THYMOGLOBULIN [Suspect]
     Indication: RENAL TRANSPLANT
     Dosage: 100 MG QD IV
     Route: 042
     Dates: start: 20050717, end: 20050717
  3. THYMOGLOBULIN [Suspect]
     Indication: KIDNEY TRANSPLANT REJECTION
     Dosage: 50 MG QD IV
     Route: 042
     Dates: start: 20050719, end: 20050719
  4. THYMOGLOBULIN [Suspect]
     Indication: RENAL TRANSPLANT
     Dosage: 50 MG QD IV
     Route: 042
     Dates: start: 20050719, end: 20050719
  5. THYMOGLOBULIN [Suspect]
     Indication: RENAL TRANSPLANT
     Dosage: 75 MG QD IV
     Route: 042
     Dates: start: 20050724, end: 20050724
  6. THYMOGLOBULIN [Suspect]
     Indication: TRANSPLANT REJECTION
     Dosage: 75 MG QD IV
     Route: 042
     Dates: start: 20050724, end: 20050724
  7. THYMOGLOBULIN [Suspect]
     Indication: KIDNEY TRANSPLANT REJECTION
     Dosage: 100 MG QD IV
     Route: 042
     Dates: start: 20050726, end: 20050726
  8. THYMOGLOBULIN [Suspect]
     Indication: RENAL TRANSPLANT
     Dosage: 100 MG QD IV
     Route: 042
     Dates: start: 20050726, end: 20050726
  9. THYMOGLOBULIN [Suspect]
     Indication: KIDNEY TRANSPLANT REJECTION
     Dosage: 1.25 MG QD IV
     Route: 042
     Dates: start: 20051201, end: 20051201
  10. THYMOGLOBULIN [Suspect]
     Indication: RENAL TRANSPLANT
     Dosage: 1.25 MG QD IV
     Route: 042
     Dates: start: 20051201, end: 20051201
  11. PROGRAF [Concomitant]
  12. MYFORTIC [Concomitant]
  13. PREDNISONE [Concomitant]
  14. BACTRIM [Concomitant]
  15. DEXAMETHASONE [Concomitant]
  16. ACETAMINOPHEN [Concomitant]

REACTIONS (3)
  - CHILLS [None]
  - PERIPHERAL SENSORY NEUROPATHY [None]
  - PYREXIA [None]
